APPROVED DRUG PRODUCT: ASPIRIN AND DIPYRIDAMOLE
Active Ingredient: ASPIRIN; DIPYRIDAMOLE
Strength: 25MG;200MG
Dosage Form/Route: CAPSULE, EXTENDED RELEASE;ORAL
Application: A206392 | Product #001 | TE Code: AB
Applicant: AMNEAL PHARMACEUTICALS OF NEW YORK LLC
Approved: Mar 8, 2016 | RLD: No | RS: No | Type: RX